FAERS Safety Report 10100844 (Version 6)
Quarter: 2014Q2

REPORT INFORMATION
  Report Type: Spontaneous
  Country: US (occurrence: US)
  Receive Date: 20140423
  Receipt Date: 20140626
  Transmission Date: 20141212
  Serious: Yes (Hospitalization, Other)
  Sender: FDA-Public Use
  Company Number: US-GILEAD-2014-0100563

PATIENT
  Sex: Female

DRUGS (4)
  1. LETAIRIS [Suspect]
     Indication: PULMONARY HYPERTENSION
     Dosage: 10 MG, QD
     Route: 065
     Dates: start: 20070802
  2. REVATIO [Concomitant]
  3. COUMADIN                           /00014802/ [Concomitant]
  4. FLOLAN [Concomitant]

REACTIONS (5)
  - Device alarm issue [Unknown]
  - Pyrexia [Unknown]
  - Renal failure [Unknown]
  - Dialysis [Unknown]
  - Fluid retention [Unknown]
